FAERS Safety Report 4601896-0 (Version None)
Quarter: 2005Q1

REPORT INFORMATION
  Report Type: 
  Country: None (occurrence: None)
  Receive Date: 20050215
  Receipt Date: 20050104
  Transmission Date: 20050727
  Serious: No
  Sender: FDA-Public Use
  Company Number: 391631

PATIENT
  Sex: Male

DRUGS (9)
  1. PEGASYS [Suspect]
     Dosage: SUBCUTANEOUS
     Route: 058
  2. COPEGUS [Suspect]
     Dosage: ORAL
     Route: 048
  3. DIAZEPAM [Suspect]
     Indication: NECK PAIN
     Dosage: 1 DOSE FORM 1 PER DAY ORAL
     Route: 048
  4. BENADRYL [Suspect]
     Indication: SLEEP DISORDER
     Dosage: 3 DOSE FORM 1 PER DAY OAL
     Route: 048
  5. NEXIUM [Concomitant]
  6. NEURONTIN [Concomitant]
  7. REGLAN [Concomitant]
  8. MOTRIN [Concomitant]
  9. EFFEXOR [Concomitant]

REACTIONS (7)
  - BRONCHITIS [None]
  - DEPRESSION [None]
  - DRUG INTERACTION [None]
  - FEELING ABNORMAL [None]
  - HAEMOLYTIC ANAEMIA [None]
  - INSOMNIA [None]
  - NECK PAIN [None]
